FAERS Safety Report 5704260-6 (Version None)
Quarter: 2008Q2

REPORT INFORMATION
  Report Type: 
  Country: None (occurrence: None)
  Receive Date: 20080414
  Receipt Date: 20080408
  Transmission Date: 20081010
  Serious: Yes (Congenital Anomaly)
  Sender: FDA-Public Use
  Company Number: US-AVENTIS-200721698GDDC

PATIENT
  Sex: Male

DRUGS (27)
  1. ARAVA [Suspect]
     Indication: RHEUMATOID ARTHRITIS
     Route: 064
     Dates: start: 20070423, end: 20070522
  2. ARAVA [Suspect]
     Route: 064
     Dates: start: 20070423, end: 20070522
  3. PRENATAL VITAMINS                  /01549301/ [Concomitant]
     Route: 048
     Dates: start: 20070531, end: 20070725
  4. FOLIC ACID [Concomitant]
     Route: 048
     Dates: start: 20070601, end: 20071217
  5. IRON [Concomitant]
     Route: 048
     Dates: start: 20070605, end: 20070925
  6. DEPO PROVERA                       /00115202/ [Concomitant]
     Route: 051
     Dates: start: 20070507, end: 20070507
  7. CAFFEINE CITRATE [Concomitant]
     Route: 048
     Dates: start: 20070412, end: 20070629
  8. CHOLESTYRAMINE [Concomitant]
     Route: 048
     Dates: start: 20070618, end: 20070627
  9. PLAQUENIL                          /00072601/ [Concomitant]
     Route: 048
     Dates: start: 20070412, end: 20071217
  10. VOLTAREN [Concomitant]
     Route: 048
     Dates: start: 20070412, end: 20070521
  11. COLACE [Concomitant]
     Dosage: DOSE: 2 PILLS
     Route: 048
     Dates: start: 20070622, end: 20070729
  12. TYLENOL (CAPLET) [Concomitant]
     Dosage: DOSE: 2 PILLS
     Route: 048
     Dates: start: 20070521, end: 20070521
  13. TYLENOL (CAPLET) [Concomitant]
     Dosage: DOSE: 2 PILLS
     Route: 048
     Dates: start: 20070501, end: 20070531
  14. MOTRIN [Concomitant]
     Dosage: DOSE: 1 PILL
     Route: 048
     Dates: start: 20070518, end: 20070519
  15. FLINTSTONES MULTIPLE VITAMINS [Concomitant]
     Dosage: DOSE: 2 PILLS
     Route: 048
     Dates: start: 20070726, end: 20071217
  16. PREDNISONE [Concomitant]
     Route: 048
     Dates: start: 20070715, end: 20070914
  17. PREDNISONE [Concomitant]
     Route: 048
     Dates: start: 20070914, end: 20071001
  18. PREDNISONE [Concomitant]
     Route: 048
     Dates: start: 20071001, end: 20071007
  19. PREDNISONE [Concomitant]
     Route: 048
     Dates: start: 20071008, end: 20071014
  20. PREDNISONE [Concomitant]
     Route: 048
     Dates: start: 20071015, end: 20071022
  21. PREDNISONE [Concomitant]
     Route: 048
     Dates: start: 20071023, end: 20071217
  22. CLINDAMYCIN HCL [Concomitant]
     Route: 048
     Dates: start: 20070824, end: 20070830
  23. LORTAB [Concomitant]
     Route: 048
     Dates: start: 20070828, end: 20070902
  24. IRON [Concomitant]
     Route: 048
     Dates: start: 20070925, end: 20071217
  25. ZANTAC [Concomitant]
     Route: 048
     Dates: start: 20071213, end: 20071213
  26. INFLUENZA VACCINE [Concomitant]
     Route: 051
     Dates: start: 20070914, end: 20070914
  27. CORTICOSTEROIDS [Concomitant]
     Dosage: DOSE: 2 SHOTS
     Route: 051
     Dates: start: 20071124, end: 20071130

REACTIONS (10)
  - BUNDLE BRANCH BLOCK RIGHT [None]
  - CHONDRODYSTROPHY [None]
  - CLEFT PALATE [None]
  - DRUG EXPOSURE DURING PREGNANCY [None]
  - HEART BLOCK CONGENITAL [None]
  - PATENT DUCTUS ARTERIOSUS [None]
  - PIERRE ROBIN SYNDROME [None]
  - QRS AXIS ABNORMAL [None]
  - SPINA BIFIDA OCCULTA [None]
  - TACHYARRHYTHMIA [None]
